FAERS Safety Report 18794553 (Version 1)
Quarter: 2021Q1

REPORT INFORMATION
  Report Type: Spontaneous
  Country: SE (occurrence: SE)
  Receive Date: 20210127
  Receipt Date: 20210127
  Transmission Date: 20210419
  Serious: Yes (Other)
  Sender: FDA-Public Use
  Company Number: SE-ASTRAZENECA-2021A011657

PATIENT
  Age: 73 Year
  Sex: Male

DRUGS (9)
  1. ATORVASTATIN [Concomitant]
     Active Substance: ATORVASTATIN
     Route: 065
     Dates: start: 20201105
  2. FURIX [Concomitant]
     Dosage: VB
     Route: 065
     Dates: start: 20201105
  3. WARAN [Interacting]
     Active Substance: WARFARIN SODIUM
     Indication: TRICUSPID VALVE REPAIR
     Route: 048
     Dates: start: 20201029, end: 20210105
  4. LOSARTAN. [Concomitant]
     Active Substance: LOSARTAN
     Route: 065
     Dates: start: 20101006
  5. PARACETAMOL [Concomitant]
     Active Substance: ACETAMINOPHEN
     Dosage: 1000 MG VB
     Route: 065
     Dates: start: 20201105
  6. TROMBYL [Concomitant]
     Active Substance: ASPIRIN
     Route: 065
     Dates: start: 20201105
  7. METFORMIN [Concomitant]
     Active Substance: METFORMIN HYDROCHLORIDE
     Route: 065
     Dates: start: 20191119
  8. HUMULIN NPH KWIKPEN [Concomitant]
     Route: 065
     Dates: start: 20121123
  9. FORXIGA [Suspect]
     Active Substance: DAPAGLIFLOZIN
     Route: 048
     Dates: start: 20201216

REACTIONS (2)
  - Drug interaction [Recovered/Resolved]
  - International normalised ratio decreased [Recovered/Resolved]

NARRATIVE: CASE EVENT DATE: 20201216
